FAERS Safety Report 6032545-5 (Version None)
Quarter: 2009Q1

REPORT INFORMATION
  Report Type: 
  Country: None (occurrence: None)
  Receive Date: 20090109
  Receipt Date: 20081211
  Transmission Date: 20090719
  Serious: No
  Sender: FDA-Public Use
  Company Number: A0760008A

PATIENT
  Age: 53 Year
  Sex: Female

DRUGS (5)
  1. TYKERB [Suspect]
     Indication: BREAST CANCER
     Dosage: 5TAB PER DAY
     Route: 048
     Dates: start: 20080501
  2. PRILOSEC [Concomitant]
  3. MIDODRINE [Concomitant]
  4. COREG [Concomitant]
  5. XELODA [Concomitant]

REACTIONS (2)
  - INGROWING NAIL [None]
  - SKIN CHAPPED [None]
